FAERS Safety Report 15310601 (Version 5)
Quarter: 2022Q1

REPORT INFORMATION
  Report Type: Report from Study
  Country: US (occurrence: US)
  Receive Date: 20180823
  Receipt Date: 20220312
  Transmission Date: 20220423
  Serious: Yes (Hospitalization, Other)
  Sender: FDA-Public Use
  Company Number: PHHY2018US078398

PATIENT
  Sex: Male

DRUGS (2)
  1. ENTRESTO [Suspect]
     Active Substance: SACUBITRIL\VALSARTAN
     Indication: Cardiac disorder
     Dosage: UNK, BID
     Route: 048
     Dates: start: 2020
  2. FUROSEMIDE [Concomitant]
     Active Substance: FUROSEMIDE
     Indication: Product used for unknown indication
     Dosage: UNK
     Route: 065

REACTIONS (24)
  - Nasopharyngitis [Not Recovered/Not Resolved]
  - Localised infection [Unknown]
  - Balanoposthitis [Unknown]
  - Pruritus [Unknown]
  - Swelling [Unknown]
  - Concomitant disease aggravated [Unknown]
  - Prostate cancer [Unknown]
  - Malaise [Unknown]
  - Dyspepsia [Unknown]
  - Oropharyngeal pain [Unknown]
  - Lymphadenopathy [Unknown]
  - Speech disorder [Unknown]
  - Renal disorder [Unknown]
  - Product use in unapproved indication [Unknown]
  - Diabetic neuropathy [Unknown]
  - Chest pain [Unknown]
  - Nervousness [Unknown]
  - Paraesthesia [Unknown]
  - Dyspnoea [Unknown]
  - Headache [Unknown]
  - Decreased appetite [Unknown]
  - Somnolence [Unknown]
  - Product dose omission issue [Unknown]
  - Drug ineffective [Unknown]
